FAERS Safety Report 17685262 (Version 2)
Quarter: 2020Q2

REPORT INFORMATION
  Report Type: Spontaneous
  Country: US (occurrence: US)
  Receive Date: 20200420
  Receipt Date: 20200423
  Transmission Date: 20200714
  Serious: Yes (Other)
  Sender: FDA-Public Use
  Company Number: US-JNJFOC-20200416240

PATIENT

DRUGS (1)
  1. ZYRTEC [Suspect]
     Active Substance: CETIRIZINE HYDROCHLORIDE
     Indication: SEASONAL ALLERGY
     Dosage: PRESCRIBED CETIRIZINE HYDROCHLORIDE (ZYRTEC) BY A DOCTOR ABOUT 17 YEARS AGO
     Route: 065

REACTIONS (5)
  - Drug dependence [Unknown]
  - Withdrawal syndrome [Unknown]
  - Urticaria [Unknown]
  - Pruritus [Unknown]
  - Drug tolerance [Unknown]
